FAERS Safety Report 6153714-X (Version None)
Quarter: 2009Q2

REPORT INFORMATION
  Report Type: 
  Country: None (occurrence: None)
  Receive Date: 20090410
  Receipt Date: 20090330
  Transmission Date: 20091009
  Serious: Yes (Hospitalization)
  Sender: FDA-Public Use
  Company Number: 2009-00680

PATIENT
  Age: 52 Year
  Sex: Female
  Weight: 86.6 kg

DRUGS (18)
  1. VELCADE [Suspect]
     Indication: MULTIPLE MYELOMA
     Dosage: 0.7  MG/M2, INTRAVENOUS
     Route: 042
     Dates: start: 20081020, end: 20090127
  2. DOXIL [Suspect]
     Indication: MULTIPLE MYELOMA
     Dosage: 30 MG/M2, INTRAVENOUS
     Route: 042
     Dates: start: 20081023, end: 20090115
  3. DEXAMETHASONE [Suspect]
     Indication: MULTIPLE MYELOMA
     Dosage: 20 MG, ORAL
     Route: 048
  4. COLACE (DOCUSATE SODIUM) [Concomitant]
  5. DURAGESIC-100 [Concomitant]
  6. LASIX [Concomitant]
  7. DILAUDID [Concomitant]
  8. ZOFRAN [Concomitant]
  9. PERCOCET [Concomitant]
  10. PHENERGAN HCL [Concomitant]
  11. LOVENOX [Concomitant]
  12. KLOR-CON [Concomitant]
  13. DIFLUCAN [Concomitant]
  14. GABAPENTIN [Concomitant]
  15. AUGMENTIN '125' [Concomitant]
  16. COUMADIN [Concomitant]
  17. MAGNESIUM (MAGNESIUM) [Concomitant]
  18. KADIAN [Concomitant]

REACTIONS (10)
  - ANAEMIA [None]
  - ANTINUCLEAR ANTIBODY INCREASED [None]
  - CELLULITIS [None]
  - CONSTIPATION [None]
  - INTERNATIONAL NORMALISED RATIO INCREASED [None]
  - MYOSITIS [None]
  - NEUTROPHIL COUNT DECREASED [None]
  - PAIN [None]
  - VENOUS THROMBOSIS LIMB [None]
  - WHITE BLOOD CELL COUNT DECREASED [None]
